FAERS Safety Report 15035775 (Version 2)
Quarter: 2018Q3

REPORT INFORMATION
  Report Type: Spontaneous
  Country: US (occurrence: US)
  Receive Date: 20180620
  Receipt Date: 20180702
  Transmission Date: 20181010
  Serious: Yes (Hospitalization, Other)
  Sender: FDA-Public Use
  Company Number: US-VIIV HEALTHCARE LIMITED-US2018GSK109425

PATIENT
  Age: 33 Year
  Sex: Male

DRUGS (2)
  1. PREZCOBIX [Suspect]
     Active Substance: COBICISTAT\DARUNAVIR ETHANOLATE
     Indication: PRODUCT USED FOR UNKNOWN INDICATION
     Dosage: UNK
     Dates: start: 20180521
  2. JULUCA [Suspect]
     Active Substance: DOLUTEGRAVIR SODIUM\RILPIVIRINE HYDROCHLORIDE
     Indication: PRODUCT USED FOR UNKNOWN INDICATION
     Dosage: UNK
     Dates: start: 20180521

REACTIONS (11)
  - Pruritus generalised [Unknown]
  - Pallor [Unknown]
  - Blood potassium decreased [Unknown]
  - Rash generalised [Unknown]
  - Rash erythematous [Unknown]
  - Tachycardia [Unknown]
  - Rash [Unknown]
  - White blood cell count increased [Unknown]
  - Pyrexia [Unknown]
  - Liver function test increased [Unknown]
  - Acute kidney injury [Unknown]
